FAERS Safety Report 17045709 (Version 3)
Quarter: 2020Q1

REPORT INFORMATION
  Report Type: Spontaneous
  Country: RO (occurrence: RO)
  Receive Date: 20191118
  Receipt Date: 20200206
  Transmission Date: 20200409
  Serious: Yes (Hospitalization)
  Sender: FDA-Public Use
  Company Number: RO-BAXTER-2019BAX023430

PATIENT
  Age: 51 Year
  Sex: Female

DRUGS (9)
  1. ZARZIO [Suspect]
     Active Substance: FILGRASTIM
     Indication: LIPOSARCOMA
     Dosage: 30,000 IU/M2 TOTAL DOSE (5 DAYS)
     Route: 065
     Dates: start: 20180605, end: 20180607
  2. HOLOXAN 1G [Suspect]
     Active Substance: IFOSFAMIDE
     Dosage: IFOSFAMIDA
     Route: 065
     Dates: start: 20180605, end: 20180607
  3. UROMITEXAN 400 MG/4 ML SOLUTIE INJECTABILA [Suspect]
     Active Substance: MESNA
     Indication: LIPOSARCOMA
     Dosage: MESNA 2000MG (DAY 1+2 )
     Route: 065
     Dates: start: 20180515, end: 20180516
  4. UROMITEXAN 400 MG/4 ML SOLUTIE INJECTABILA [Suspect]
     Active Substance: MESNA
     Dosage: MESNA 2400MG
     Route: 065
     Dates: start: 20180605, end: 20180607
  5. DOXIL [Suspect]
     Active Substance: DOXORUBICIN HYDROCHLORIDE
     Indication: LIPOSARCOMA
     Dosage: 300 MG/M2 MG (DAY 1 +2+3)
     Route: 065
     Dates: start: 20180315, end: 20180317
  6. DOXIL [Suspect]
     Active Substance: DOXORUBICIN HYDROCHLORIDE
     Dosage: 300 MG/M2 MG
     Route: 065
     Dates: start: 20180605, end: 20180607
  7. UROMITEXAN 400 MG/4 ML SOLUTIE INJECTABILA [Suspect]
     Active Substance: MESNA
     Dosage: MESNA 1000MG (DAY 3)
     Route: 065
     Dates: start: 20180517, end: 20180517
  8. HOLOXAN 1G [Suspect]
     Active Substance: IFOSFAMIDE
     Indication: LIPOSARCOMA
     Dosage: IFOSFAMIDA (DAY 1+2)
     Route: 065
     Dates: start: 20180515, end: 20180516
  9. HOLOXAN 1G [Suspect]
     Active Substance: IFOSFAMIDE
     Dosage: IFOSFAMIDA 1000 MG (DAY 3)
     Route: 065
     Dates: start: 20180517, end: 20180517

REACTIONS (1)
  - Cardiac failure acute [Not Recovered/Not Resolved]
